FAERS Safety Report 4305393-1 (Version None)
Quarter: 2004Q1

REPORT INFORMATION
  Report Type: 
  Country: None (occurrence: None)
  Receive Date: 20040226
  Receipt Date: 20031002
  Transmission Date: 20041129
  Serious: No
  Sender: FDA-Public Use
  Company Number: US-BRISTOL-MYERS SQUIBB COMPANY-12400099

PATIENT
  Age: 74 Year
  Sex: Female
  Weight: 63 kg

DRUGS (6)
  1. TAXOL [Suspect]
     Indication: BREAST CANCER
     Route: 042
  2. RADIATION THERAPY [Concomitant]
     Indication: BREAST CANCER
  3. ULTRAM [Concomitant]
  4. TYLENOL (CAPLET) [Concomitant]
  5. ATIVAN [Concomitant]
  6. ZOLOFT [Concomitant]

REACTIONS (2)
  - PAIN [None]
  - WEIGHT DECREASED [None]
